APPROVED DRUG PRODUCT: DOFETILIDE
Active Ingredient: DOFETILIDE
Strength: 0.25MG
Dosage Form/Route: CAPSULE;ORAL
Application: A208519 | Product #002
Applicant: STRIDES PHARMA INTERNATIONAL AG
Approved: Oct 9, 2018 | RLD: No | RS: No | Type: DISCN